FAERS Safety Report 16378664 (Version 1)
Quarter: 2019Q2

REPORT INFORMATION
  Report Type: Spontaneous
  Country: US (occurrence: US)
  Receive Date: 20190412
  Receipt Date: 20190412
  Transmission Date: 20190711
  Serious: Yes (Hospitalization, Disabling)
  Sender: FDA-Public Use
  Company Number: None

PATIENT
  Age: 26 Year
  Sex: Female
  Weight: 62.1 kg

DRUGS (8)
  1. MODAFINIL. [Concomitant]
     Active Substance: MODAFINIL
  2. CIPROFLOXACIN. [Suspect]
     Active Substance: CIPROFLOXACIN
     Indication: URINARY TRACT INFECTION
     Dosage: ?          QUANTITY:12 TABLET(S);?
     Route: 048
     Dates: start: 20181015, end: 20181018
  3. CLONAZEPRAM [Concomitant]
  4. TYLENOL [Concomitant]
     Active Substance: ACETAMINOPHEN
  5. ZOFRAN [Concomitant]
     Active Substance: ONDANSETRON HYDROCHLORIDE
  6. AIMOVIG [Concomitant]
     Active Substance: ERENUMAB-AOOE
  7. WELLBUTRIN [Concomitant]
     Active Substance: BUPROPION HYDROCHLORIDE
  8. SUMATRIPTAN. [Concomitant]
     Active Substance: SUMATRIPTAN

REACTIONS (11)
  - Pruritus [None]
  - Anxiety [None]
  - Fatigue [None]
  - Nausea [None]
  - Migraine [None]
  - Paraesthesia [None]
  - Arthralgia [None]
  - Dizziness [None]
  - Depression [None]
  - Tremor [None]
  - Muscular weakness [None]

NARRATIVE: CASE EVENT DATE: 20190101
